FAERS Safety Report 4382471-2 (Version None)
Quarter: 2004Q2

REPORT INFORMATION
  Report Type: 
  Country: None (occurrence: None)
  Receive Date: 20040610
  Receipt Date: 20040524
  Transmission Date: 20050107
  Serious: Yes (Hospitalization)
  Sender: FDA-Public Use
  Company Number: 2004-116441-NL

PATIENT
  Age: 82 Year
  Sex: Male
  Weight: 86.8 kg

DRUGS (5)
  1. TICE BCG ^ORGANON^ [Suspect]
     Indication: BLADDER CANCER
     Dosage: CFU INTRAVESICAL, 6 INSTILLATIONS
     Dates: start: 20040304, end: 20040415
  2. DILACOR XR [Concomitant]
  3. ATENOLOL [Concomitant]
  4. MAXZIDE [Concomitant]
  5. AUGMENTIN [Suspect]

REACTIONS (6)
  - ANAEMIA [None]
  - COUGH [None]
  - LIVER FUNCTION TEST ABNORMAL [None]
  - MYALGIA [None]
  - PYREXIA [None]
  - WHITE BLOOD CELL COUNT INCREASED [None]
